FAERS Safety Report 7000873-2 (Version None)
Quarter: 2010Q3

REPORT INFORMATION
  Report Type: 
  Country: None (occurrence: None)
  Receive Date: 20100920
  Receipt Date: 20100908
  Transmission Date: 20110219
  Serious: Yes (Hospitalization, Other)
  Sender: FDA-Public Use
  Company Number: PHHY2010JP54764

PATIENT

DRUGS (3)
  1. NEORAL [Suspect]
     Indication: NEPHROTIC SYNDROME
     Dosage: 75 MG, DAILY
     Route: 048
     Dates: start: 20081102
  2. PREDONINE [Concomitant]
     Dosage: 5MG, UNK
     Route: 048
     Dates: start: 20080702
  3. IMIPENEM AND CILASTATIN [Concomitant]
     Dosage: 1G, UNK
     Dates: start: 20100817, end: 20100822

REACTIONS (3)
  - ACCIDENT [None]
  - SKIN GRAFT [None]
  - THERMAL BURN [None]
